FAERS Safety Report 12635693 (Version 2)
Quarter: 2016Q4

REPORT INFORMATION
  Report Type: Spontaneous
  Country: MX (occurrence: MX)
  Receive Date: 20160809
  Receipt Date: 20161004
  Transmission Date: 20170207
  Serious: Yes (Disabling, Other)
  Sender: FDA-Public Use
  Company Number: MX-ROCHE-1794189

PATIENT
  Age: 43 Year
  Sex: Male
  Weight: 86 kg

DRUGS (1)
  1. AVASTIN [Suspect]
     Active Substance: BEVACIZUMAB
     Indication: PRODUCT USED FOR UNKNOWN INDICATION
     Route: 050
     Dates: start: 201505, end: 20160615

REACTIONS (8)
  - Off label use [Unknown]
  - Endophthalmitis [Recovering/Resolving]
  - Weight decreased [Recovering/Resolving]
  - Suspected counterfeit product [Unknown]
  - Blindness unilateral [Recovering/Resolving]
  - Vision blurred [Recovered/Resolved]
  - Suspected transmission of an infectious agent via product [Unknown]
  - Incorrect route of drug administration [Unknown]

NARRATIVE: CASE EVENT DATE: 20160615
